FAERS Safety Report 4767740-6 (Version None)
Quarter: 2005Q3

REPORT INFORMATION
  Report Type: 
  Country: None (occurrence: None)
  Receive Date: 20050913
  Receipt Date: 20050906
  Transmission Date: 20060218
  Serious: Yes (Hospitalization)
  Sender: FDA-Public Use
  Company Number: US-ABBOTT-05P-163-0310323-00

PATIENT
  Sex: Female
  Weight: 49.486 kg

DRUGS (7)
  1. HUMIRA [Suspect]
     Indication: RHEUMATOID ARTHRITIS
     Route: 058
     Dates: start: 20050815, end: 20050825
  2. LOSARTAN POTASSIUM [Concomitant]
     Indication: BLOOD PRESSURE INCREASED
     Route: 048
     Dates: start: 20000101
  3. LANSOPRAZOLE [Concomitant]
     Indication: PROPHYLAXIS AGAINST GASTROINTESTINAL ULCER
     Route: 048
     Dates: start: 20050701
  4. CALCIUM GLUCONATE [Concomitant]
     Indication: RHEUMATOID ARTHRITIS
     Route: 048
     Dates: start: 20050701
  5. CALCIUM GLUCONATE [Concomitant]
     Indication: OSTEOPOROSIS
  6. FOLIC ACID [Concomitant]
     Indication: VITAMIN SUPPLEMENTATION
     Route: 048
     Dates: start: 20050701
  7. TRAMADOL HYDROCHLORIDE [Concomitant]
     Indication: ARTHRALGIA
     Route: 048
     Dates: start: 20030101

REACTIONS (7)
  - BLOOD SODIUM DECREASED [None]
  - CHOKING SENSATION [None]
  - DYSPHAGIA [None]
  - DYSPNOEA [None]
  - PARAESTHESIA [None]
  - PRURITUS [None]
  - RASH GENERALISED [None]
